FAERS Safety Report 24120476 (Version 1)
Quarter: 2024Q3

REPORT INFORMATION
  Report Type: Spontaneous
  Country: DE (occurrence: DE)
  Receive Date: 20240722
  Receipt Date: 20240722
  Transmission Date: 20241016
  Serious: Yes (Other)
  Sender: DAIICHI
  Company Number: None

PATIENT
  Age: 75 Year
  Sex: Female
  Weight: 58 kg

DRUGS (2)
  1. EDOXABAN TOSYLATE [Suspect]
     Active Substance: EDOXABAN TOSYLATE
     Indication: Product used for unknown indication
     Dosage: 60 MG, QD (TAKE FIRST THING IN THE MORNING, THEN SWITCH TO BEFORE BEDTIME)
     Route: 065
     Dates: start: 2020
  2. EDOXABAN TOSYLATE [Suspect]
     Active Substance: EDOXABAN TOSYLATE
     Dosage: 30 MG, QD
     Route: 065
     Dates: start: 2023

REACTIONS (11)
  - Anaphylactic shock [Unknown]
  - Syncope [Recovered/Resolved]
  - Atrial fibrillation [Unknown]
  - Palpitations [Unknown]
  - Diarrhoea [Unknown]
  - Weight decreased [Unknown]
  - General physical health deterioration [Recovered/Resolved]
  - Tachycardia [Unknown]
  - Malaise [Unknown]
  - Asthenia [Unknown]
  - Dizziness [Unknown]

NARRATIVE: CASE EVENT DATE: 20240201
